FAERS Safety Report 13535139 (Version 1)
Quarter: 2017Q2

REPORT INFORMATION
  Report Type: Other
  Country: IT (occurrence: IT)
  Receive Date: 20170511
  Receipt Date: 20170511
  Transmission Date: 20170830
  Serious: Yes (Other)
  Sender: FDA-Public Use
  Company Number: IT-CELLTRION INC.-2017IT005739

PATIENT

DRUGS (2)
  1. REMSIMA [Suspect]
     Active Substance: INFLIXIMAB
     Indication: PRODUCT USED FOR UNKNOWN INDICATION
     Dosage: 470 MG, CYCLIC
     Route: 042
     Dates: start: 20160811, end: 20160811
  2. REMSIMA [Suspect]
     Active Substance: INFLIXIMAB
     Dosage: 470 MG, CYCLIC
     Route: 042
     Dates: start: 20161205, end: 20161205

REACTIONS (2)
  - Supraventricular extrasystoles [Recovered/Resolved]
  - Drug ineffective [Unknown]

NARRATIVE: CASE EVENT DATE: 20161206
